FAERS Safety Report 9786390 (Version 1)
Quarter: 2013Q4

REPORT INFORMATION
  Report Type: Spontaneous
  Country: JP (occurrence: None)
  Receive Date: 20131224
  Receipt Date: 20131224
  Transmission Date: 20140711
  Serious: Yes (Hospitalization, Other)
  Sender: FDA-Public Use
  Company Number: VAL_02869_2013

PATIENT
  Age: 78 Year
  Sex: Male

DRUGS (1)
  1. PARLODEL [Suspect]
     Indication: PRODUCT USED FOR UNKNOWN INDICATION
     Dosage: DF ORAL
     Route: 048
     Dates: start: 2013, end: 2013

REACTIONS (3)
  - Pleural effusion [None]
  - Exposure to chemical pollution [None]
  - Thoracic operation [None]
